FAERS Safety Report 5330045-9 (Version None)
Quarter: 2007Q2

REPORT INFORMATION
  Report Type: 
  Country: None (occurrence: None)
  Receive Date: 20070521
  Receipt Date: 20070509
  Transmission Date: 20071010
  Serious: Yes (Death, Other)
  Sender: FDA-Public Use
  Company Number: BR-ELI_LILLY_AND_COMPANY-BR200705003356

PATIENT
  Age: 50 Year
  Sex: Male

DRUGS (4)
  1. ZYPREXA [Suspect]
     Indication: PSYCHOMOTOR HYPERACTIVITY
     Dosage: UNK, DAILY (1/D)
     Route: 030
     Dates: start: 20070325, end: 20070325
  2. HALOPERIDOL [Concomitant]
     Dosage: UNK, UNKNOWN
     Route: 048
  3. BIPERIDEN HYDROCHLORIDE TAB [Concomitant]
     Dosage: UNK, UNKNOWN
     Route: 048
  4. DORMONID [Concomitant]
     Dosage: UNK, UNKNOWN
     Route: 048

REACTIONS (2)
  - DEATH [None]
  - HYPOTENSION [None]
